FAERS Safety Report 6296279-4 (Version None)
Quarter: 2009Q3

REPORT INFORMATION
  Report Type: 
  Country: None (occurrence: None)
  Receive Date: 20090804
  Receipt Date: 20090724
  Transmission Date: 20100115
  Serious: Yes (Hospitalization)
  Sender: FDA-Public Use
  Company Number: CH-PFIZER INC-2009245892

PATIENT
  Age: 90 Year

DRUGS (7)
  1. SINEQUAN [Suspect]
     Dosage: 25 MG, 1X/DAY
     Route: 048
     Dates: start: 20090204, end: 20090407
  2. DAFALGAN [Suspect]
     Dosage: 1 G, 4X/DAY
     Route: 048
     Dates: start: 20090204, end: 20090407
  3. NOVALGIN [Concomitant]
     Dosage: 500 MG, 1X/DAY
     Route: 048
  4. FENTANYL [Concomitant]
     Dosage: 1 DF, 1X/DAY
     Route: 062
  5. ASPIRIN [Concomitant]
     Dosage: 100 MG, 1X/DAY
     Route: 048
  6. CALPEROS [Concomitant]
     Dosage: 1 DF, 1X/DAY
     Route: 048
  7. MAGNESIOCARD [Concomitant]
     Dosage: 1 DF, 1X/DAY
     Route: 048

REACTIONS (4)
  - FATIGUE [None]
  - HYPERBILIRUBINAEMIA [None]
  - LIVER INJURY [None]
  - VOMITING [None]
